FAERS Safety Report 8987498 (Version 2)
Quarter: 2013Q1

REPORT INFORMATION
  Report Type: Spontaneous
  Country: IT (occurrence: IT)
  Receive Date: 20121227
  Receipt Date: 20130104
  Transmission Date: 20140127
  Serious: Yes (Hospitalization)
  Sender: FDA-Public Use
  Company Number: IT-TEVA-376740ISR

PATIENT
  Age: 32 Year
  Sex: Male

DRUGS (10)
  1. ETOPOSIDE [Suspect]
     Indication: ACUTE MYELOID LEUKAEMIA
     Dosage: ACCORDING TO EORTC/GIMEMA AML-12 TREATMENT TRIAL
     Route: 065
  2. CYTARABINE [Suspect]
     Indication: ACUTE MYELOID LEUKAEMIA
     Dosage: ACCORDING TO EORTC/GIMEMA AML-12 TREATMENT TRIAL
     Route: 065
  3. CYTARABINE [Suspect]
     Indication: ACUTE MYELOID LEUKAEMIA
     Dosage: HIGH-DOSE; ACCORDING TO EORTC/GIMEMA AML-12 TREATMENT TRIAL
     Route: 065
  4. AMPHOTERICIN B [Suspect]
     Indication: EVIDENCE BASED TREATMENT
     Dosage: 3 MG/KG/D
     Route: 065
  5. AMPHOTERICIN B [Suspect]
     Indication: ANTIFUNGAL PROPHYLAXIS
     Route: 065
  6. ITRACONAZOLE [Concomitant]
     Indication: ANTIFUNGAL PROPHYLAXIS
     Route: 065
  7. DAUNORUBICIN [Concomitant]
     Indication: ACUTE MYELOID LEUKAEMIA
     Route: 065
  8. CICLOSPORIN [Concomitant]
     Indication: PROPHYLAXIS AGAINST GRAFT VERSUS HOST DISEASE
     Route: 065
  9. METHOTREXATE [Concomitant]
     Indication: PROPHYLAXIS AGAINST GRAFT VERSUS HOST DISEASE
     Dosage: SHORT COURSE
     Route: 065
  10. FLUOROQUINOLONE [Concomitant]

REACTIONS (5)
  - Neutropenia [Recovered/Resolved]
  - Zygomycosis [Recovered/Resolved]
  - Pulmonary mycosis [Recovered/Resolved]
  - Blood bilirubin increased [Recovered/Resolved]
  - Blood alkaline phosphatase increased [Recovered/Resolved]
